FAERS Safety Report 21407378 (Version 1)
Quarter: 2022Q4

REPORT INFORMATION
  Report Type: Spontaneous
  Country: US (occurrence: None)
  Receive Date: 20221004
  Receipt Date: 20221004
  Transmission Date: 20230113
  Serious: Yes (Hospitalization, Other)
  Sender: FDA-Public Use
  Company Number: US-FARMAPROD-202209-1838

PATIENT
  Sex: Female

DRUGS (2)
  1. OXERVATE [Suspect]
     Active Substance: CENEGERMIN-BKBJ
     Indication: Neurotrophic keratopathy
     Route: 047
     Dates: start: 20210225, end: 20210422
  2. OXERVATE [Suspect]
     Active Substance: CENEGERMIN-BKBJ
     Route: 047
     Dates: start: 20220829

REACTIONS (7)
  - Spinal operation [Unknown]
  - Hip surgery [Unknown]
  - Knee operation [Unknown]
  - Fall [Unknown]
  - Back pain [Unknown]
  - Intentional product misuse [Unknown]
  - Wrong technique in product usage process [Unknown]
